FAERS Safety Report 15433781 (Version 2)
Quarter: 2025Q3

REPORT INFORMATION
  Report Type: Spontaneous
  Country: EU (occurrence: EU)
  Receive Date: 20180927
  Receipt Date: 20250726
  Transmission Date: 20251021
  Serious: Yes (Death)
  Sender: AUROBINDO
  Company Number: EU-AUROBINDO-AUR-APL-2018-047385

PATIENT
  Age: 28 Year
  Sex: Male

DRUGS (3)
  1. OLANZAPINE [Interacting]
     Active Substance: OLANZAPINE
     Indication: Product used for unknown indication
     Route: 065
  2. TRIMIPRAMINE [Interacting]
     Active Substance: TRIMIPRAMINE
     Indication: Product used for unknown indication
     Route: 065
  3. METHAMPHETAMINE [Concomitant]
     Active Substance: METHAMPHETAMINE
     Indication: Product used for unknown indication
     Route: 065

REACTIONS (1)
  - Drug interaction [Fatal]
